FAERS Safety Report 10148782 (Version 1)
Quarter: 2014Q2

REPORT INFORMATION
  Report Type: Report from Study
  Country: CN (occurrence: CN)
  Receive Date: 20140502
  Receipt Date: 20140502
  Transmission Date: 20141212
  Serious: Yes (Other)
  Sender: FDA-Public Use
  Company Number: CN-ROCHE-1390141

PATIENT
  Sex: 0

DRUGS (8)
  1. CAPECITABINE [Suspect]
     Indication: RECTAL CANCER
     Dosage: FROM DAY 1-14
     Route: 048
  2. CAPECITABINE [Suspect]
     Dosage: FROM DAY 1-14
     Route: 048
  3. OXALIPLATIN [Suspect]
     Indication: RECTAL CANCER
     Dosage: DAY 1 IN FOLFOX6 REGIMEN
     Route: 065
  4. OXALIPLATIN [Suspect]
     Dosage: DAY 1
     Route: 065
  5. OXALIPLATIN [Suspect]
     Dosage: ON DAY 1
     Route: 065
  6. LEUCOVORIN [Suspect]
     Indication: RECTAL CANCER
     Dosage: ON DAY 1
     Route: 065
  7. 5-FU [Suspect]
     Indication: RECTAL CANCER
     Dosage: ON DAY 1
     Route: 042
  8. 5-FU [Suspect]
     Route: 042

REACTIONS (12)
  - Abdominal distension [Unknown]
  - Abdominal pain [Unknown]
  - Nausea [Unknown]
  - Vomiting [Unknown]
  - Enteritis [Unknown]
  - Diarrhoea [Unknown]
  - Constipation [Unknown]
  - Neurotoxicity [Unknown]
  - Palmar-plantar erythrodysaesthesia syndrome [Unknown]
  - Haemoglobin abnormal [Unknown]
  - Neutrophil count abnormal [Unknown]
  - Platelet count abnormal [Unknown]
